FAERS Safety Report 25620683 (Version 2)
Quarter: 2025Q3

REPORT INFORMATION
  Report Type: Spontaneous
  Country: US (occurrence: US)
  Receive Date: 20250730
  Receipt Date: 20250902
  Transmission Date: 20251020
  Serious: No
  Sender: APOTEX
  Company Number: US-APOTEX-2025AP010331

PATIENT
  Sex: Female

DRUGS (2)
  1. IPRATROPIUM BROMIDE [Suspect]
     Active Substance: IPRATROPIUM BROMIDE
     Indication: Rhinorrhoea
     Dosage: 4 DOSAGE FORM, TID (TWO SQUIRTS PER NOSTRIL, THREE TIMES A DAY)
     Route: 045
     Dates: start: 20250505
  2. IPRATROPIUM BROMIDE [Suspect]
     Active Substance: IPRATROPIUM BROMIDE
     Indication: Nasal congestion

REACTIONS (3)
  - Condition aggravated [Unknown]
  - Product substitution issue [Unknown]
  - Drug ineffective [Unknown]
